FAERS Safety Report 6774741-5 (Version None)
Quarter: 2010Q2

REPORT INFORMATION
  Report Type: 
  Country: None (occurrence: None)
  Receive Date: 20100615
  Receipt Date: 20100615
  Transmission Date: 20101027
  Serious: No
  Sender: FDA-Public Use
  Company Number: None

PATIENT
  Sex: Female

DRUGS (1)
  1. HYDROMORPHONE [Suspect]
     Indication: PAIN
     Dosage: 0.2MG PRN IV BOLUS
     Route: 040

REACTIONS (3)
  - ATRIAL FIBRILLATION [None]
  - CONFUSIONAL STATE [None]
  - LETHARGY [None]
